FAERS Safety Report 23924461 (Version 1)
Quarter: 2024Q2

REPORT INFORMATION
  Report Type: Report from Study
  Country: US (occurrence: US)
  Receive Date: 20240531
  Receipt Date: 20240531
  Transmission Date: 20240716
  Serious: Yes (Other)
  Sender: FDA-Public Use
  Company Number: US-JNJFOC-20240576004

PATIENT
  Age: 50 Year
  Sex: Female

DRUGS (8)
  1. EDURANT [Suspect]
     Active Substance: RILPIVIRINE HYDROCHLORIDE
     Indication: HIV infection
     Route: 048
     Dates: start: 20240401, end: 20240428
  2. RILPIVIRINE [Suspect]
     Active Substance: RILPIVIRINE
     Indication: HIV infection
     Dosage: INJECTED VIA IM-MONTHLY FOR 2 MONTHS, THEN EVERY OTHER MONTH THEREAFTER
     Route: 030
     Dates: start: 20240429, end: 20240521
  3. VOCABRIA [Suspect]
     Active Substance: CABOTEGRAVIR SODIUM
     Indication: HIV infection
     Route: 048
     Dates: start: 20240401, end: 20240428
  4. CABOTEGRAVIR [Suspect]
     Active Substance: CABOTEGRAVIR
     Indication: HIV infection
     Dosage: INJECTED VIA IM-MONTHLY FOR 2 MONTHS, THEN EVERY OTHER MONTH THEREAFTER
     Route: 030
     Dates: start: 20240429, end: 20240521
  5. HEPLISAV B [Concomitant]
     Indication: Hepatitis B
     Dates: start: 20240401
  6. SERTRALINE [Concomitant]
     Active Substance: SERTRALINE HYDROCHLORIDE
  7. TRAZODONE [Concomitant]
     Active Substance: TRAZODONE HYDROCHLORIDE
  8. TUMS [Concomitant]
     Active Substance: CALCIUM CARBONATE

REACTIONS (1)
  - Hepatitis B reactivation [Not Recovered/Not Resolved]

NARRATIVE: CASE EVENT DATE: 20240429
